FAERS Safety Report 13124162 (Version 1)
Quarter: 2017Q1

REPORT INFORMATION
  Report Type: Spontaneous
  Country: US (occurrence: US)
  Receive Date: 20170118
  Receipt Date: 20170118
  Transmission Date: 20170428
  Serious: Yes (Other)
  Sender: FDA-Public Use
  Company Number: US-ZYDUS-013277

PATIENT
  Age: 58 Year
  Sex: Male

DRUGS (2)
  1. MESALAZINE [Concomitant]
     Active Substance: MESALAMINE
     Indication: IMMUNOSUPPRESSANT DRUG THERAPY
     Route: 065
  2. AZATHIOPRINE. [Suspect]
     Active Substance: AZATHIOPRINE
     Indication: IMMUNOSUPPRESSANT DRUG THERAPY
     Route: 065

REACTIONS (6)
  - B-cell lymphoma [Not Recovered/Not Resolved]
  - Disease progression [Not Recovered/Not Resolved]
  - Lymphadenopathy [Not Recovered/Not Resolved]
  - Local swelling [Not Recovered/Not Resolved]
  - Vascular compression [Not Recovered/Not Resolved]
  - Disease recurrence [Not Recovered/Not Resolved]
